FAERS Safety Report 4285566-7 (Version None)
Quarter: 2004Q1

REPORT INFORMATION
  Report Type: 
  Country: None (occurrence: None)
  Receive Date: 20040204
  Receipt Date: 20040122
  Transmission Date: 20041129
  Serious: Yes (Hospitalization)
  Sender: FDA-Public Use
  Company Number: 2004-00262

PATIENT
  Age: 73 Year
  Sex: Female

DRUGS (3)
  1. METHOCARBAMOL [Suspect]
     Indication: MUSCLE RELAXANT THERAPY
     Dosage: 500 MG, DAILY, ORAL
     Route: 048
     Dates: start: 20031201
  2. DURAGESIC [Suspect]
     Indication: BACK PAIN
     Dosage: 1 PATCH. Q72H, TRANSDERMAL
     Route: 062
     Dates: start: 20031223
  3. PROZAC [Concomitant]

REACTIONS (9)
  - ABNORMAL DREAMS [None]
  - ATRIAL FIBRILLATION [None]
  - CHEST PAIN [None]
  - DRY MOUTH [None]
  - DYSPEPSIA [None]
  - HYPOAESTHESIA [None]
  - JOINT SWELLING [None]
  - OEDEMA PERIPHERAL [None]
  - PANIC ATTACK [None]
